FAERS Safety Report 4290513-8 (Version None)
Quarter: 2004Q1

REPORT INFORMATION
  Report Type: 
  Country: None (occurrence: None)
  Receive Date: 20040209
  Receipt Date: 20040124
  Transmission Date: 20041129
  Serious: Yes (Other)
  Sender: FDA-Public Use
  Company Number: 701239

PATIENT
  Age: 49 Year
  Sex: Male
  Weight: 142.8831 kg

DRUGS (1)
  1. AMEVIVE [Suspect]
     Indication: PSORIASIS
     Dosage: 15 MG QW IM
     Dates: start: 20031001

REACTIONS (2)
  - DIASTOLIC DYSFUNCTION [None]
  - PULMONARY OEDEMA [None]
